FAERS Safety Report 22314004 (Version 1)
Quarter: 2023Q2

REPORT INFORMATION
  Report Type: Spontaneous
  Country: CN (occurrence: CN)
  Receive Date: 20230512
  Receipt Date: 20230512
  Transmission Date: 20230722
  Serious: Yes (Other)
  Sender: FDA-Public Use
  Company Number: CN-002147023-NVSC2023CN107366

PATIENT
  Age: 83 Year
  Sex: Female
  Weight: 55 kg

DRUGS (2)
  1. TRILEPTAL [Suspect]
     Active Substance: OXCARBAZEPINE
     Indication: Epilepsy
     Dosage: 0.3 G, BID
     Route: 048
     Dates: start: 20230119, end: 20230313
  2. TRILEPTAL [Suspect]
     Active Substance: OXCARBAZEPINE
     Dosage: ONE AND A HALF TABLET AT A TIME, BID
     Route: 048
     Dates: end: 20230318

REACTIONS (5)
  - Drug eruption [Unknown]
  - Pruritus [Recovering/Resolving]
  - Rash [Recovering/Resolving]
  - Rash maculo-papular [Unknown]
  - Epilepsy [Unknown]

NARRATIVE: CASE EVENT DATE: 20230313
